FAERS Safety Report 19868905 (Version 1)
Quarter: 2021Q3

REPORT INFORMATION
  Report Type: Spontaneous
  Country: CN (occurrence: CN)
  Receive Date: 20210922
  Receipt Date: 20210922
  Transmission Date: 20211014
  Serious: Yes (Other)
  Sender: FDA-Public Use
  Company Number: CN-PFIZER INC-202101212725

PATIENT
  Age: 47 Year
  Sex: Female
  Weight: 56 kg

DRUGS (2)
  1. METHOTREXATE. [Suspect]
     Active Substance: METHOTREXATE
     Indication: ACUTE LEUKAEMIA
     Dosage: 1.6 G, 1X/DAY
     Route: 041
     Dates: start: 20210816, end: 20210816
  2. CYTARABINE. [Concomitant]
     Active Substance: CYTARABINE
     Dosage: 3.5 G, 2X/DAY (Q12H)

REACTIONS (6)
  - Dysphagia [Recovered/Resolved]
  - Vomiting [Recovered/Resolved]
  - Blood urea increased [Recovered/Resolved]
  - Blood uric acid increased [Recovered/Resolved]
  - Nausea [Recovered/Resolved]
  - Blood creatinine increased [Recovered/Resolved]

NARRATIVE: CASE EVENT DATE: 20210819
